FAERS Safety Report 6037125-3 (Version None)
Quarter: 2009Q1

REPORT INFORMATION
  Report Type: 
  Country: None (occurrence: None)
  Receive Date: 20090114
  Receipt Date: 20081210
  Transmission Date: 20090719
  Serious: No
  Sender: FDA-Public Use
  Company Number: US-BAYER-200840460NA

PATIENT
  Age: 75 Year
  Sex: Female
  Weight: 82 kg

DRUGS (2)
  1. ULTRAVIST 300 [Suspect]
     Indication: COMPUTERISED TOMOGRAM ABDOMEN
     Dosage: TOTAL DAILY DOSE: 100 ML  UNIT DOSE: 500 ML
     Route: 042
     Dates: start: 20081210, end: 20081210
  2. CHEETAH [Concomitant]
     Indication: COMPUTERISED TOMOGRAM ABDOMEN
     Dosage: AS USED: 900 ML
     Route: 048
     Dates: start: 20081210, end: 20081210

REACTIONS (1)
  - URTICARIA [None]
